FAERS Safety Report 9548469 (Version 1)
Quarter: 2013Q3

REPORT INFORMATION
  Report Type: Spontaneous
  Country: US (occurrence: None)
  Receive Date: 20130923
  Receipt Date: 20130923
  Transmission Date: 20140515
  Serious: No
  Sender: FDA-Public Use
  Company Number: None

PATIENT
  Age: 72 Year
  Sex: Male
  Weight: 102.06 kg

DRUGS (2)
  1. OMEPRAZOLE [Suspect]
     Indication: GASTROOESOPHAGEAL REFLUX DISEASE
     Dosage: PILLS, ONCE DAILY TAKEN BY MOUTH
     Dates: start: 20130717, end: 20130904
  2. OMEPRAZOLE [Suspect]
     Indication: GASTROOESOPHAGEAL REFLUX DISEASE
     Dosage: PILLS, ONCE DAILY TAKEN BY MOUTH
     Dates: start: 20130717, end: 20130904

REACTIONS (5)
  - Diarrhoea [None]
  - Drug ineffective [None]
  - Flatulence [None]
  - Product quality issue [None]
  - Product substitution issue [None]
